FAERS Safety Report 6122572-1 (Version None)
Quarter: 2009Q1

REPORT INFORMATION
  Report Type: 
  Country: None (occurrence: None)
  Receive Date: 20090318
  Receipt Date: 20090313
  Transmission Date: 20090719
  Serious: Yes (Other)
  Sender: FDA-Public Use
  Company Number: JP-BRISTOL-MYERS SQUIBB COMPANY-14524508

PATIENT
  Age: 52 Year
  Sex: Female

DRUGS (2)
  1. KENACORT [Suspect]
     Indication: OSTEOARTHRITIS
     Route: 014
     Dates: start: 20081115, end: 20081115
  2. XYLOCAINE [Suspect]
     Route: 014
     Dates: start: 20081115, end: 20081115

REACTIONS (1)
  - CRYSTAL ARTHROPATHY [None]
